FAERS Safety Report 4439315-X (Version None)
Quarter: 2004Q3

REPORT INFORMATION
  Report Type: 
  Country: None (occurrence: None)
  Receive Date: 20040831
  Receipt Date: 20040817
  Transmission Date: 20050211
  Serious: Yes (Hospitalization, Disabling)
  Sender: FDA-Public Use
  Company Number: 2004-BP-06108BP

PATIENT
  Age: 49 Year
  Sex: Male

DRUGS (2)
  1. MOBIC [Suspect]
     Indication: INFLAMMATION LOCALISED
     Dosage: SEE IMAGE
     Route: 048
     Dates: start: 20030813, end: 20031103
  2. MOBIC [Suspect]
     Indication: INFLAMMATION LOCALISED
     Dosage: SEE IMAGE
     Route: 048
     Dates: start: 20040201, end: 20040423

REACTIONS (9)
  - CANDIDIASIS [None]
  - CROHN'S DISEASE [None]
  - DEHYDRATION [None]
  - DIARRHOEA HAEMORRHAGIC [None]
  - ENTEROCOLITIS INFECTIOUS [None]
  - HAEMATEMESIS [None]
  - HERPES ZOSTER [None]
  - IRRITABLE BOWEL SYNDROME [None]
  - WEIGHT DECREASED [None]
